FAERS Safety Report 5145712-X (Version None)
Quarter: 2006Q4

REPORT INFORMATION
  Report Type: 
  Country: None (occurrence: None)
  Receive Date: 20060915
  Receipt Date: 20050725
  Transmission Date: 20070319
  Serious: Yes (Hospitalization)
  Sender: FDA-Public Use
  Company Number: S05-USA-03621-01

PATIENT
  Sex: Male

DRUGS (3)
  1. CELEXA [Suspect]
     Indication: ANXIETY
     Dates: start: 20030423, end: 20030430
  2. ATIVAN [Concomitant]
  3. ZYPREXA [Concomitant]

REACTIONS (7)
  - AGGRESSION [None]
  - ANXIETY [None]
  - DEPRESSION [None]
  - IRRITABILITY [None]
  - MANIA [None]
  - PANIC ATTACK [None]
  - PARANOIA [None]
